FAERS Safety Report 12527004 (Version 1)
Quarter: 2016Q3

REPORT INFORMATION
  Report Type: Spontaneous
  Country: US (occurrence: US)
  Receive Date: 20160705
  Receipt Date: 20160705
  Transmission Date: 20161109
  Serious: No
  Sender: FDA-Public Use
  Company Number: US-GLAXOSMITHKLINE-US2016089393

PATIENT
  Age: 71 Year
  Sex: Female

DRUGS (2)
  1. TANZEUM [Suspect]
     Active Substance: ALBIGLUTIDE
     Dosage: UNK
  2. TANZEUM [Suspect]
     Active Substance: ALBIGLUTIDE
     Indication: DIABETES MELLITUS
     Dosage: 30 MG, WE
     Route: 058

REACTIONS (4)
  - Wrong technique in product usage process [Unknown]
  - Accidental underdose [Unknown]
  - Device use error [Unknown]
  - Device leakage [Unknown]

NARRATIVE: CASE EVENT DATE: 20160621
